FAERS Safety Report 8046172-1 (Version None)
Quarter: 2012Q1

REPORT INFORMATION
  Report Type: 
  Country: None (occurrence: None)
  Receive Date: 20120113
  Receipt Date: 20111121
  Transmission Date: 20120608
  Serious: Yes (Hospitalization, Other)
  Sender: FDA-Public Use
  Company Number: US-ROXANE LABORATORIES, INC.-2011-EU-00565GD

PATIENT
  Sex: Male

DRUGS (27)
  1. CYCLOSPORINE [Suspect]
     Indication: SCLERODERMA
  2. TACROLIMUS [Suspect]
     Indication: SCLERODERMA
  3. GROWTH HORMONE [Concomitant]
  4. PREDNISONE [Suspect]
     Indication: GRAFT VERSUS HOST DISEASE IN SKIN
  5. ANTIEPILEPTIC AGENT [Concomitant]
  6. ANTACIDS [Concomitant]
  7. POTASSIUM CHLORIDE [Concomitant]
  8. PREDNISONE [Suspect]
     Indication: SCLERODERMA
     Dosage: 2.5 MG
  9. TACROLIMUS [Suspect]
     Indication: CHRONIC GRAFT VERSUS HOST DISEASE
     Dosage: 2 MG
  10. ANTIMICROBIAL AGENTS [Concomitant]
  11. CALCIUM CHANNEL BLOCKER [Concomitant]
  12. OPIOID AND NON-OPIOID ANALGESICS [Concomitant]
  13. CALCIUM [Concomitant]
  14. APPETITE STIMULANT [Concomitant]
  15. CYCLOSPORINE [Suspect]
     Indication: CHRONIC GRAFT VERSUS HOST DISEASE
  16. SIROLIMUS [Suspect]
     Indication: CHRONIC GRAFT VERSUS HOST DISEASE
     Dosage: 1 MG
  17. LEVOTHYROXINE SODIUM [Concomitant]
  18. VITAMIN D [Concomitant]
  19. IRON [Concomitant]
  20. PREDNISONE [Suspect]
     Dosage: 40 MG
  21. SIROLIMUS [Suspect]
     Indication: SCLERODERMA
  22. ANTILIPEMIC AGENTS [Concomitant]
  23. ADRENERGIC BRONCHODILATOR [Concomitant]
  24. PREDNISONE [Suspect]
     Indication: CHRONIC GRAFT VERSUS HOST DISEASE
     Dosage: A PULSE OF MODERATE-DOSE PREDNISONE
  25. TESTOSTERONE [Concomitant]
  26. CYCLOSPORINE [Suspect]
     Indication: GRAFT VERSUS HOST DISEASE IN SKIN
  27. MULTI-VITAMIN [Concomitant]

REACTIONS (12)
  - MYOPATHY [None]
  - CONVULSION [None]
  - HYPERTENSION [None]
  - OSTEONECROSIS [None]
  - WRIST FRACTURE [None]
  - GAIT DISTURBANCE [None]
  - CATARACT [None]
  - DRUG INEFFECTIVE [None]
  - HAEMOGLOBIN DECREASED [None]
  - RED BLOOD CELL COUNT DECREASED [None]
  - PLATELET COUNT DECREASED [None]
  - HYPERGLYCAEMIA [None]
